FAERS Safety Report 15119337 (Version 2)
Quarter: 2018Q3

REPORT INFORMATION
  Report Type: Report from Study
  Country: DE (occurrence: DE)
  Receive Date: 20180709
  Receipt Date: 20180719
  Transmission Date: 20181010
  Serious: Yes (Hospitalization, Other)
  Sender: FDA-Public Use
  Company Number: DE-009507513-1803DEU012604

PATIENT
  Age: 82 Year
  Sex: Female
  Weight: 56 kg

DRUGS (56)
  1. PANTOPRAZOLE [Suspect]
     Active Substance: PANTOPRAZOLE
     Dosage: 20 MG,QD
     Route: 065
  2. XIPAMIDE [Suspect]
     Active Substance: XIPAMIDE
     Indication: PRODUCT USED FOR UNKNOWN INDICATION
     Dosage: 20 MG, UNK
     Route: 065
  3. BIFITERAL [Suspect]
     Active Substance: LACTULOSE
     Dosage: UNK
     Route: 065
     Dates: end: 20170124
  4. SODIUM CHLORIDE. [Concomitant]
     Active Substance: SODIUM CHLORIDE
     Dosage: UNK, QD
  5. SPASMEX (TROSPIUM CHLORIDE) [Suspect]
     Active Substance: TROSPIUM CHLORIDE
     Dosage: 15 MG, QD
     Route: 065
  6. HUMIRA [Suspect]
     Active Substance: ADALIMUMAB
     Indication: RHEUMATOID ARTHRITIS
     Dosage: 1 (UNIT UNKNOWN), QOW
     Route: 058
  7. HUMIRA [Suspect]
     Active Substance: ADALIMUMAB
     Dosage: UNK
     Route: 058
     Dates: start: 20120111, end: 20160927
  8. VOLTAREN RESINAT [Suspect]
     Active Substance: DICLOFENAC
     Indication: PRODUCT USED FOR UNKNOWN INDICATION
     Dosage: 2 (UNIT UNKNOWN), QD
     Route: 065
  9. AMIODARONE HYDROCHLORIDE. [Suspect]
     Active Substance: AMIODARONE HYDROCHLORIDE
     Dosage: 200 MG, UNK
     Route: 065
  10. SODIUM CHLORIDE. [Concomitant]
     Active Substance: SODIUM CHLORIDE
     Indication: PRODUCT USED FOR UNKNOWN INDICATION
     Dosage: 3 (UNIT UNKNOWN), QD
  11. FOLIC ACID. [Concomitant]
     Active Substance: FOLIC ACID
     Indication: PRODUCT USED FOR UNKNOWN INDICATION
     Dosage: 5 MG, UNK
     Route: 065
  12. FOLIC ACID. [Concomitant]
     Active Substance: FOLIC ACID
     Dosage: 5 MG,UNK
     Route: 065
     Dates: start: 20170124
  13. SIMVASTATIN. [Suspect]
     Active Substance: SIMVASTATIN
     Indication: PRODUCT USED FOR UNKNOWN INDICATION
     Dosage: 40 MG, UNK
     Route: 065
  14. PANTOPRAZOLE [Suspect]
     Active Substance: PANTOPRAZOLE
     Indication: PRODUCT USED FOR UNKNOWN INDICATION
     Dosage: DAILY DOSE: 20 MG MILLGRAM(S) EVERY DAYS
     Route: 065
  15. DEKRISTOL [Suspect]
     Active Substance: CHOLECALCIFEROL
     Dosage: 20000 IU,QW
     Route: 065
  16. VALSARTAN. [Suspect]
     Active Substance: VALSARTAN
     Indication: PRODUCT USED FOR UNKNOWN INDICATION
     Dosage: 160 MG, UNK
     Route: 065
  17. AMIODARONE HYDROCHLORIDE. [Suspect]
     Active Substance: AMIODARONE HYDROCHLORIDE
     Dosage: 200 MG,UNK
     Route: 065
  18. LEVOSIMENDAN [Concomitant]
     Active Substance: LEVOSIMENDAN
     Indication: PRODUCT USED FOR UNKNOWN INDICATION
     Dosage: FOR 1.5 DAYS
     Route: 065
     Dates: start: 201611, end: 201611
  19. SPASMEX (TROSPIUM CHLORIDE) [Suspect]
     Active Substance: TROSPIUM CHLORIDE
     Indication: PRODUCT USED FOR UNKNOWN INDICATION
     Dosage: DAILY DOSE: 15 MG MILLGRAM(S) EVERY DAYS
     Route: 065
  20. DEKRISTOL [Suspect]
     Active Substance: CHOLECALCIFEROL
     Indication: PRODUCT USED FOR UNKNOWN INDICATION
     Dosage: DAILY DOSE: 20000 IU INTERNATIONAL UNIT(S) EVERY WEEKS
     Route: 065
  21. BIFITERAL [Suspect]
     Active Substance: LACTULOSE
     Indication: PRODUCT USED FOR UNKNOWN INDICATION
     Dosage: UNK
     Route: 065
  22. XIPAMIDE [Suspect]
     Active Substance: XIPAMIDE
     Dosage: 20 MG,UNK
     Route: 065
     Dates: end: 20170124
  23. SPASMEX (TROSPIUM CHLORIDE) [Suspect]
     Active Substance: TROSPIUM CHLORIDE
     Dosage: 15 MG, QD
     Route: 065
     Dates: start: 20170124
  24. CLOPIDOGREL BISULFATE. [Suspect]
     Active Substance: CLOPIDOGREL BISULFATE
     Indication: PRODUCT USED FOR UNKNOWN INDICATION
     Dosage: UNK
     Route: 048
     Dates: end: 20170124
  25. HUMIRA [Suspect]
     Active Substance: ADALIMUMAB
     Dosage: UNK UNK,QOW
     Route: 058
     Dates: start: 20120411, end: 20160927
  26. METOPROLOL SUCCINATE. [Suspect]
     Active Substance: METOPROLOL SUCCINATE
     Indication: PRODUCT USED FOR UNKNOWN INDICATION
     Dosage: 95 MG, UNK
     Route: 065
     Dates: end: 20170124
  27. FENTANYL. [Suspect]
     Active Substance: FENTANYL
     Indication: PRODUCT USED FOR UNKNOWN INDICATION
     Dosage: 75 MICROGRAM/HOUR AND PLASTER CHANGE EVERY 3 DAYS
     Route: 062
  28. FOLIC ACID. [Concomitant]
     Active Substance: FOLIC ACID
     Dosage: 5 MG, UNK
     Route: 065
  29. ENOXAPARIN SODIUM. [Concomitant]
     Active Substance: ENOXAPARIN SODIUM
     Indication: PRODUCT USED FOR UNKNOWN INDICATION
     Dosage: DAILY DOSE: 0.6 MG MILLGRAM(S) EVERY DAYS
     Route: 065
  30. TORASEMID ACTAVIS [Suspect]
     Active Substance: TORSEMIDE
     Dosage: 45 MG, QD
     Route: 065
     Dates: start: 20170124, end: 20170124
  31. HUMIRA [Suspect]
     Active Substance: ADALIMUMAB
     Dosage: 1 (UNIT UNKNOWN), QOW
     Route: 058
  32. DEKRISTOL [Suspect]
     Active Substance: CHOLECALCIFEROL
     Dosage: UNK
  33. MOVICOL [Suspect]
     Active Substance: POLYETHYLENE GLYCOL 3350\POTASSIUM CHLORIDE\SODIUM BICARBONATE\SODIUM CHLORIDE
     Indication: PRODUCT USED FOR UNKNOWN INDICATION
     Dosage: UNK
     Route: 065
     Dates: start: 20170124
  34. SPIRO COMP [Suspect]
     Active Substance: FUROSEMIDE\SPIRONOLACTONE
     Indication: PRODUCT USED FOR UNKNOWN INDICATION
     Dosage: 50MG/20MG
     Route: 065
     Dates: end: 201610
  35. FENTANYL. [Suspect]
     Active Substance: FENTANYL
     Dosage: 75 UG,QH
     Route: 062
  36. AMIODARONE HYDROCHLORIDE. [Suspect]
     Active Substance: AMIODARONE HYDROCHLORIDE
     Dosage: UNK
  37. CORDAREX [Concomitant]
     Active Substance: AMIODARONE
     Indication: PRODUCT USED FOR UNKNOWN INDICATION
     Dosage: DAILY DOSE: 200 MG MILLGRAM(S) EVERY DAYS
  38. LIXIANA [Suspect]
     Active Substance: EDOXABAN TOSYLATE
     Indication: ATRIAL FIBRILLATION
     Dosage: DAILY DOSE: 30 MG MILLGRAM(S) EVERY DAYS
     Route: 065
  39. LIXIANA [Suspect]
     Active Substance: EDOXABAN TOSYLATE
     Dosage: 30 MG,QD
     Route: 065
     Dates: start: 20160930
  40. BISOHEXAL [Suspect]
     Active Substance: BISOPROLOL FUMARATE
     Indication: PRODUCT USED FOR UNKNOWN INDICATION
     Dosage: 5 MG, QD
     Route: 065
     Dates: start: 2016
  41. AMIODARONE [Suspect]
     Active Substance: AMIODARONE
     Indication: PRODUCT USED FOR UNKNOWN INDICATION
     Route: 065
  42. LOSARTAN COMP ABZ [Suspect]
     Active Substance: HYDROCHLOROTHIAZIDE\LOSARTAN POTASSIUM
     Indication: PRODUCT USED FOR UNKNOWN INDICATION
     Dosage: 100/25 MG
     Route: 065
     Dates: start: 2016
  43. DEKRISTOL [Suspect]
     Active Substance: CHOLECALCIFEROL
     Dosage: UNK
  44. BIFITERAL [Suspect]
     Active Substance: LACTULOSE
     Dosage: UNK
     Route: 065
  45. BIFITERAL [Suspect]
     Active Substance: LACTULOSE
     Dosage: UNK UNK,UNK
     Route: 065
     Dates: start: 20170124
  46. VOLTAREN RESINAT [Suspect]
     Active Substance: DICLOFENAC
     Dosage: UNK UNK, QD
     Route: 065
     Dates: start: 201610, end: 201610
  47. AMIODARONE HYDROCHLORIDE. [Suspect]
     Active Substance: AMIODARONE HYDROCHLORIDE
     Indication: PRODUCT USED FOR UNKNOWN INDICATION
     Route: 065
  48. RIOPAN [Concomitant]
     Dosage: 1600MG, QD
     Route: 048
  49. PREDNISOLONE. [Suspect]
     Active Substance: PREDNISOLONE
     Indication: PRODUCT USED FOR UNKNOWN INDICATION
     Dosage: 5 MG, UNK
     Route: 065
  50. TORASEMID ACTAVIS [Suspect]
     Active Substance: TORSEMIDE
     Indication: PRODUCT USED FOR UNKNOWN INDICATION
     Dosage: 5 MG, QD
     Route: 065
  51. SPASMEX (TROSPIUM CHLORIDE) [Suspect]
     Active Substance: TROSPIUM CHLORIDE
     Dosage: DAILY DOSE: 45 MG MILLGRAM(S) EVERY DAYS
     Route: 065
  52. HUMIRA [Suspect]
     Active Substance: ADALIMUMAB
     Dosage: UNK UNK,QOW
     Route: 058
     Dates: start: 20161115
  53. ASPIRIN. [Suspect]
     Active Substance: ASPIRIN
     Indication: PRODUCT USED FOR UNKNOWN INDICATION
     Dosage: 100 MG, UNK
     Route: 065
  54. RIOPAN [Concomitant]
     Indication: PRODUCT USED FOR UNKNOWN INDICATION
     Dosage: DAILY DOSE: 4800 MG MILLGRAM(S) EVERY DAYS
     Route: 048
  55. TOREM [Concomitant]
     Active Substance: TORSEMIDE
     Indication: PRODUCT USED FOR UNKNOWN INDICATION
     Dosage: DAILY DOSE: 5 MG MILLGRAM(S) EVERY DAYS
  56. FRAXIPARIN [Concomitant]
     Active Substance: NADROPARIN CALCIUM
     Indication: PRODUCT USED FOR UNKNOWN INDICATION
     Dosage: DAILY DOSE: 5700 IU INTERNATIONAL UNIT(S) EVERY DAYS
     Route: 058

REACTIONS (54)
  - Anaemia [Recovered/Resolved]
  - Aplastic anaemia [Unknown]
  - Escherichia infection [Unknown]
  - Joint dislocation [Unknown]
  - Vomiting [Unknown]
  - Haematuria [Unknown]
  - Femoral hernia incarcerated [Recovered/Resolved]
  - Eructation [Unknown]
  - Faecaloma [Unknown]
  - Arthralgia [Unknown]
  - Anuria [Recovered/Resolved]
  - Aortic arteriosclerosis [Unknown]
  - Peripheral swelling [Recovered/Resolved]
  - Diverticulum intestinal [Unknown]
  - Mitral valve incompetence [Unknown]
  - Decreased appetite [Unknown]
  - Cardiovascular disorder [Unknown]
  - Joint dislocation [Recovered/Resolved]
  - Myocardial infarction [Recovered/Resolved]
  - Myelodysplastic syndrome [Unknown]
  - Impaired healing [Recovered/Resolved]
  - General physical health deterioration [Unknown]
  - Cardiogenic shock [Unknown]
  - Gastrointestinal haemorrhage [Recovered/Resolved]
  - Wound infection pseudomonas [Unknown]
  - Seroma [Unknown]
  - Pulmonary hypertension [Unknown]
  - Inflammatory marker increased [Recovered/Resolved]
  - Abdominal discomfort [Unknown]
  - Dyspepsia [Unknown]
  - Acute kidney injury [Unknown]
  - Tricuspid valve incompetence [Unknown]
  - Hyponatraemia [Unknown]
  - Groin pain [Unknown]
  - Urinary tract infection [Unknown]
  - Gait disturbance [Unknown]
  - Coronary artery disease [Unknown]
  - Syncope [Unknown]
  - Wound dehiscence [Recovered/Resolved]
  - Osteopenia [Unknown]
  - Pancreatic steatosis [Unknown]
  - Hiatus hernia [Unknown]
  - Left ventricular dysfunction [Recovered/Resolved]
  - Hepatic cyst [Unknown]
  - Postoperative wound infection [Recovered/Resolved]
  - Urinary retention [Unknown]
  - Arterial haemorrhage [Recovered/Resolved]
  - Lymphatic fistula [Recovered/Resolved]
  - Dyspnoea [Unknown]
  - Hyperkalaemia [Unknown]
  - Haemarthrosis [Unknown]
  - Tachyarrhythmia [Unknown]
  - Oedema peripheral [Unknown]
  - Aortic valve stenosis [Unknown]

NARRATIVE: CASE EVENT DATE: 201603
